FAERS Safety Report 5391403-X (Version None)
Quarter: 2007Q3

REPORT INFORMATION
  Report Type: 
  Country: None (occurrence: None)
  Receive Date: 20070719
  Receipt Date: 20070712
  Transmission Date: 20080115
  Serious: Yes (Other)
  Sender: FDA-Public Use
  Company Number: JP-MERCK-0706USA03020

PATIENT
  Age: 73 Year
  Sex: Female

DRUGS (3)
  1. FOSAMAX [Suspect]
     Indication: OSTEOPOROSIS
     Route: 048
     Dates: start: 20070530
  2. ETODOLAC [Concomitant]
     Route: 048
     Dates: start: 20070523
  3. MYONAL [Concomitant]
     Route: 048
     Dates: start: 20070523

REACTIONS (3)
  - BACK PAIN [None]
  - CHEST PAIN [None]
  - INCONTINENCE [None]
